APPROVED DRUG PRODUCT: BUMETANIDE
Active Ingredient: BUMETANIDE
Strength: 0.25MG/ML
Dosage Form/Route: INJECTABLE;INJECTION
Application: A217153 | Product #001 | TE Code: AP
Applicant: LUPIN LTD
Approved: Sep 17, 2024 | RLD: No | RS: No | Type: RX